FAERS Safety Report 7355030-7 (Version None)
Quarter: 2011Q1

REPORT INFORMATION
  Report Type: 
  Country: None (occurrence: None)
  Receive Date: 20110316
  Receipt Date: 20110307
  Transmission Date: 20110831
  Serious: Yes (Hospitalization)
  Sender: FDA-Public Use
  Company Number: US-NOVOPROD-324589

PATIENT
  Age: 70 Year
  Sex: Female
  Weight: 116.1 kg

DRUGS (4)
  1. DIOVAN HCT [Suspect]
     Indication: FLUID RETENTION
     Dosage: UNKOWN
     Dates: end: 20101001
  2. TORSEMIDE [Suspect]
     Indication: FLUID RETENTION
     Dosage: UNKNOWN
  3. VICTOZA [Suspect]
     Indication: TYPE 2 DIABETES MELLITUS
     Dosage: UNKNOWN
     Dates: start: 20101001
  4. VICTOZA [Suspect]
     Indication: WEIGHT DECREASED

REACTIONS (6)
  - RENAL FAILURE CHRONIC [None]
  - FLATULENCE [None]
  - NAUSEA [None]
  - VOMITING [None]
  - DIARRHOEA [None]
  - DEHYDRATION [None]
